FAERS Safety Report 8668803 (Version 4)
Quarter: 2012Q4

REPORT INFORMATION
  Report Type: 
  Country: US (occurrence: US)
  Receive Date: 20120717
  Receipt Date: 20121212
  Transmission Date: 20130627
  Serious: Yes (Hospitalization, Other)
  Sender: FDA-Public Use
  Company Number: US-JNJFOC-20120704188

PATIENT
  Sex: Male
  Weight: 86.18 kg

DRUGS (22)
  1. REMICADE [Suspect]
     Indication: CROHN^S DISEASE
     Route: 042
     Dates: start: 2011
  2. REMICADE [Suspect]
     Indication: CROHN^S DISEASE
     Route: 042
     Dates: start: 201201
  3. REMICADE [Suspect]
     Indication: CROHN^S DISEASE
     Route: 042
     Dates: start: 20120703
  4. REMICADE [Suspect]
     Indication: CROHN^S DISEASE
     Route: 042
     Dates: start: 20121023
  5. REMICADE [Suspect]
     Indication: CROHN^S DISEASE
     Route: 042
     Dates: end: 2011
  6. PENTASA [Concomitant]
     Indication: CROHN^S DISEASE
     Route: 048
  7. LEXAPRO [Concomitant]
     Indication: ANXIETY
     Route: 048
     Dates: start: 2009
  8. SEROQUEL [Concomitant]
     Indication: MALABSORPTION
     Route: 048
     Dates: start: 2009
  9. SEROQUEL [Concomitant]
     Indication: OSTEOPENIA
     Route: 048
     Dates: start: 2009
  10. TOCOPHEROL [Concomitant]
     Indication: OSTEOPENIA
     Route: 048
     Dates: start: 2009
  11. TOCOPHEROL [Concomitant]
     Indication: MALABSORPTION
     Route: 048
     Dates: start: 2009
  12. MAGNESIUM OXIDE [Concomitant]
     Indication: OSTEOPENIA
     Route: 048
     Dates: start: 2008
  13. MAGNESIUM OXIDE [Concomitant]
     Indication: MALABSORPTION
     Route: 048
     Dates: start: 2008
  14. VITAMIN D [Concomitant]
     Indication: OSTEOPENIA
     Route: 065
     Dates: start: 2009
  15. VITAMIN D [Concomitant]
     Indication: MALABSORPTION
     Route: 065
     Dates: start: 2009
  16. ZINC [Concomitant]
     Indication: MALABSORPTION
     Route: 065
     Dates: start: 2008
  17. VITAMIN A [Concomitant]
     Indication: OSTEOPENIA
     Route: 065
     Dates: start: 2009
  18. VITAMIN A [Concomitant]
     Indication: MALABSORPTION
     Route: 065
     Dates: start: 2009
  19. CALCIUM [Concomitant]
     Indication: OSTEOPENIA
     Route: 065
     Dates: start: 2009
  20. CALCIUM [Concomitant]
     Indication: MALABSORPTION
     Route: 065
     Dates: start: 2009
  21. UNSPECIFED MEDICATIONS [Concomitant]
     Route: 065
  22. CORTICOSTEROIDS NOS [Concomitant]
     Route: 065

REACTIONS (9)
  - Fistula [Recovered/Resolved]
  - Drug ineffective [Recovering/Resolving]
  - Adverse event [Unknown]
  - Weight increased [Unknown]
  - Enterocolonic fistula [Unknown]
  - Ileostomy [Unknown]
  - Fatigue [Recovered/Resolved]
  - Iron deficiency anaemia [Recovered/Resolved]
  - Vitamin B12 deficiency [Recovered/Resolved]
